FAERS Safety Report 14141755 (Version 1)
Quarter: 2017Q4

REPORT INFORMATION
  Report Type: Spontaneous
  Country: JP (occurrence: JP)
  Receive Date: 20171030
  Receipt Date: 20171030
  Transmission Date: 20180321
  Serious: Yes (Death)
  Sender: FDA-Public Use
  Company Number: JP-BAYER-2017-200939

PATIENT
  Sex: Male

DRUGS (1)
  1. XOFIGO [Suspect]
     Active Substance: RADIUM RA-223 DICHLORIDE
     Indication: PROSTATE CANCER
     Dosage: 55 KBQ/KG
     Route: 042
     Dates: start: 20170718, end: 20170718

REACTIONS (2)
  - Prostate cancer [Fatal]
  - Eastern Cooperative Oncology Group performance status worsened [Fatal]
